FAERS Safety Report 4492136-4 (Version None)
Quarter: 2004Q3

REPORT INFORMATION
  Report Type: 
  Country: None (occurrence: None)
  Receive Date: 20040924
  Receipt Date: 20040827
  Transmission Date: 20050211
  Serious: No
  Sender: FDA-Public Use
  Company Number: 04P-163-0258385-00

PATIENT
  Age: 39 Year
  Sex: Male

DRUGS (10)
  1. KALETRA [Suspect]
     Indication: HIV INFECTION
     Dosage: 6 CAPSULE, 1 IN 1 D, PER ORAL
     Route: 048
     Dates: start: 20030408, end: 20030612
  2. STAVUDINE [Concomitant]
  3. VIREAD [Concomitant]
  4. LAMIVUDINE [Concomitant]
  5. FILGRASTIM [Concomitant]
  6. DRONABINOL [Concomitant]
  7. SPORANOX [Concomitant]
  8. AZITHROMYCIN [Concomitant]
  9. DILATESTRYL [Concomitant]
  10. ZOVIRAX [Concomitant]

REACTIONS (2)
  - DEHYDRATION [None]
  - DIARRHOEA [None]
